FAERS Safety Report 11315072 (Version 2)
Quarter: 2015Q4

REPORT INFORMATION
  Report Type: Spontaneous
  Country: DZ (occurrence: DZ)
  Receive Date: 20150727
  Receipt Date: 20151007
  Transmission Date: 20160304
  Serious: Yes (Other)
  Sender: FDA-Public Use
  Company Number: DZ-BAXALTA-2015BLT000641

PATIENT

DRUGS (3)
  1. KIOVIG [Suspect]
     Active Substance: HUMAN IMMUNOGLOBULIN G
     Indication: MONONEUROPATHY MULTIPLEX
     Dosage: 0.4 G/KG/J, 1X A DAY
     Route: 042
     Dates: start: 20141102
  2. KIOVIG [Suspect]
     Active Substance: HUMAN IMMUNOGLOBULIN G
     Indication: OFF LABEL USE
     Dosage: UNK UNK
     Route: 042
     Dates: start: 20141102
  3. KIOVIG [Suspect]
     Active Substance: HUMAN IMMUNOGLOBULIN G
     Dosage: UNK UNK
     Route: 042
     Dates: start: 20141102

REACTIONS (1)
  - Iridocyclitis [Recovered/Resolved with Sequelae]

NARRATIVE: CASE EVENT DATE: 20141121
